FAERS Safety Report 5634335-1 (Version None)
Quarter: 2008Q1

REPORT INFORMATION
  Report Type: 
  Country: None (occurrence: None)
  Receive Date: 20080131
  Receipt Date: 20070220
  Transmission Date: 20080703
  Serious: Yes (Other)
  Sender: FDA-Public Use
  Company Number: 2006-BP-15178BP

PATIENT
  Age: 48 Year
  Sex: Female

DRUGS (3)
  1. SPIRIVA [Suspect]
     Indication: ASTHMA
     Dosage: 18 MCG, IH
     Route: 055
     Dates: start: 20060901
  2. ADVAIR (SERETIDE) [Concomitant]
  3. ALBUTEROL SULFATE [Concomitant]

REACTIONS (1)
  - HYPERSENSITIVITY [None]
